FAERS Safety Report 5763215-6 (Version None)
Quarter: 2008Q2

REPORT INFORMATION
  Report Type: 
  Country: None (occurrence: None)
  Receive Date: 20080609
  Receipt Date: 20080528
  Transmission Date: 20081010
  Serious: Yes (Other)
  Sender: FDA-Public Use
  Company Number: US-PFIZER INC-2008045965

PATIENT
  Sex: Female
  Weight: 59 kg

DRUGS (6)
  1. LYRICA [Suspect]
     Indication: NERVE INJURY
  2. MECLIZINE [Suspect]
     Indication: NAUSEA
  3. PROMETHAZINE [Suspect]
     Indication: NAUSEA
  4. AMITRIPTYLINE HCL [Concomitant]
  5. CARDIAC THERAPY [Concomitant]
  6. ALL OTHER THERAPEUTIC PRODUCTS [Concomitant]

REACTIONS (9)
  - ACTIVITIES OF DAILY LIVING IMPAIRED [None]
  - DIARRHOEA [None]
  - DRUG INEFFECTIVE [None]
  - DYSPNOEA [None]
  - MEDICATION ERROR [None]
  - NAUSEA [None]
  - SWELLING [None]
  - VISION BLURRED [None]
  - WEIGHT INCREASED [None]
